FAERS Safety Report 8382927-1 (Version None)
Quarter: 2012Q2

REPORT INFORMATION
  Report Type: 
  Country: None (occurrence: None)
  Receive Date: 20120524
  Receipt Date: 20120522
  Transmission Date: 20120825
  Serious: Yes (Other)
  Sender: FDA-Public Use
  Company Number: US-PFIZER INC-2011246901

PATIENT
  Sex: Male
  Weight: 104.31 kg

DRUGS (6)
  1. DILANTIN [Suspect]
     Indication: GRAND MAL CONVULSION
     Dosage: 300 MG, 2X/DAY
     Route: 048
     Dates: start: 20090901
  2. DILANTIN [Suspect]
     Dosage: UNK
  3. CALCIUM [Concomitant]
     Dosage: 500 MG
  4. LISINOPRIL [Concomitant]
     Dosage: UNK
  5. METOPROLOL [Concomitant]
     Dosage: UNK
  6. AMLODIPINE [Concomitant]
     Indication: HYPERTENSION
     Dosage: UNK

REACTIONS (5)
  - DIZZINESS [None]
  - BLOOD TRIGLYCERIDES INCREASED [None]
  - CONDUCTION DISORDER [None]
  - VENTRICULAR FIBRILLATION [None]
  - RASH [None]
